FAERS Safety Report 6337087-5 (Version None)
Quarter: 2009Q3

REPORT INFORMATION
  Report Type: 
  Country: None (occurrence: None)
  Receive Date: 20090831
  Receipt Date: 20090819
  Transmission Date: 20100115
  Serious: Yes (Hospitalization, Other)
  Sender: FDA-Public Use
  Company Number: 2009PL000248

PATIENT
  Age: 31 Year
  Sex: Female

DRUGS (1)
  1. LOTRONEX [Suspect]
     Indication: IRRITABLE BOWEL SYNDROME
     Dosage: 0.5 MG; BID;
     Dates: start: 20090401, end: 20090501

REACTIONS (7)
  - COLITIS ISCHAEMIC [None]
  - DRUG EXPOSURE DURING PREGNANCY [None]
  - GASTRIC ULCER [None]
  - GASTRITIS [None]
  - HYPERVIGILANCE [None]
  - OVERWEIGHT [None]
  - PREGNANCY [None]
